FAERS Safety Report 5469309-7 (Version None)
Quarter: 2007Q3

REPORT INFORMATION
  Report Type: 
  Country: None (occurrence: None)
  Receive Date: 20070926
  Receipt Date: 20070926
  Transmission Date: 20080115
  Serious: Yes (Hospitalization)
  Sender: FDA-Public Use
  Company Number: None

PATIENT
  Age: 38 Year
  Sex: Female
  Weight: 67.586 kg

DRUGS (2)
  1. EPIRUBICIN [Suspect]
     Indication: BREAST CANCER
     Dosage: 149MG IV Q3WK
     Route: 042
     Dates: start: 20070723, end: 20070802
  2. CYCLOPHOSPHAMIDE [Suspect]
     Indication: BREAST CANCER
     Dosage: 990MG PO Q3WK
     Route: 048
     Dates: start: 20070723, end: 20070802

REACTIONS (4)
  - FEBRILE NEUTROPENIA [None]
  - JUGULAR VEIN THROMBOSIS [None]
  - STAPHYLOCOCCAL INFECTION [None]
  - SUBCLAVIAN VEIN THROMBOSIS [None]
